FAERS Safety Report 9518245 (Version 1)
Quarter: 2013Q3

REPORT INFORMATION
  Report Type: Spontaneous
  Country: GB (occurrence: None)
  Receive Date: 20130910
  Receipt Date: 20130910
  Transmission Date: 20140515
  Serious: Yes (Hospitalization, Other)
  Sender: FDA-Public Use
  Company Number: GER/UKI/13/0034410

PATIENT
  Age: 81 Year
  Sex: Female

DRUGS (1)
  1. CIPROFLOXACIN [Suspect]
     Indication: LOWER RESPIRATORY TRACT INFECTION
     Route: 048
     Dates: end: 20121107

REACTIONS (6)
  - Treatment failure [None]
  - Vomiting [None]
  - Staphylococcus test positive [None]
  - Malabsorption [None]
  - Sepsis [None]
  - Pneumonia [None]
